FAERS Safety Report 8796363 (Version 1)
Quarter: 2012Q4

REPORT INFORMATION
  Report Type: 
  Country: ZA (occurrence: ZA)
  Receive Date: 20120919
  Receipt Date: 20120919
  Transmission Date: 20130627
  Serious: Yes (Hospitalization, Other)
  Sender: FDA-Public Use
  Company Number: ZA-WATSON-2012-16145

PATIENT
  Age: 59 Year
  Sex: Female

DRUGS (5)
  1. ALLOPURINOL (UNKNOWN) [Suspect]
     Indication: CHRONIC MYELOID LEUKAEMIA
     Dosage: unk
     Route: 065
  2. EFAVIRENZ [Suspect]
     Indication: ANTIVIRAL TREATMENT
     Dosage: unk
     Route: 065
  3. NILOTINIB [Suspect]
     Indication: CHRONIC MYELOID LEUKAEMIA
     Dosage: unk
     Route: 065
  4. RIFAMPICIN [Suspect]
     Indication: TUBERCULOSIS
     Dosage: unk
     Route: 065
  5. IMATINIB [Suspect]
     Indication: CHRONIC MYELOID LEUKAEMIA
     Dosage: unk
     Route: 065

REACTIONS (3)
  - Drug reaction with eosinophilia and systemic symptoms [Unknown]
  - Drug interaction [Unknown]
  - Drug level changed [Unknown]
